FAERS Safety Report 6666144-9 (Version None)
Quarter: 2010Q1

REPORT INFORMATION
  Report Type: 
  Country: None (occurrence: None)
  Receive Date: 20100331
  Receipt Date: 20100323
  Transmission Date: 20100710
  Serious: Yes (Hospitalization)
  Sender: FDA-Public Use
  Company Number: 2010SP018131

PATIENT
  Age: 62 Year
  Sex: Male

DRUGS (1)
  1. ASMANEX TWISTHALER [Suspect]
     Indication: DRUG USE FOR UNKNOWN INDICATION
     Dosage: PO
     Route: 048
     Dates: start: 20100312

REACTIONS (2)
  - CARDIAC DISORDER [None]
  - DEVICE FAILURE [None]
